FAERS Safety Report 14658261 (Version 3)
Quarter: 2018Q3

REPORT INFORMATION
  Report Type: Spontaneous
  Country: ES (occurrence: ES)
  Receive Date: 20180320
  Receipt Date: 20180825
  Transmission Date: 20181010
  Serious: Yes (Death, Hospitalization, Other)
  Sender: FDA-Public Use
  Company Number: ES-ACCORD-064411

PATIENT
  Age: 72 Year
  Sex: Female

DRUGS (7)
  1. FLUOXETINE [Suspect]
     Active Substance: FLUOXETINE HYDROCHLORIDE
     Indication: DEPRESSION
  2. ASENAPINE [Suspect]
     Active Substance: ASENAPINE
     Indication: DEPRESSION
     Route: 048
  3. MIRTAZAPINE. [Suspect]
     Active Substance: MIRTAZAPINE
     Indication: DEPRESSION
     Route: 048
  4. LUDIOMIL [Suspect]
     Active Substance: MAPROTILINE HYDROCHLORIDE
     Indication: DEPRESSION
     Dosage: 75 MG, UNK (1/2?0?1/2)
     Route: 048
     Dates: start: 201404, end: 201404
  5. AMITRIPTYLINE [Suspect]
     Active Substance: AMITRIPTYLINE
     Indication: DEPRESSION
  6. ALPRAZOLAM. [Suspect]
     Active Substance: ALPRAZOLAM
     Indication: PRODUCT USED FOR UNKNOWN INDICATION
     Dosage: 1 /2?1 /2?1 DOSAGE UNIT FREQUENCY:1 MG FREQUENCY UNIT: 1 DAY
     Route: 048
     Dates: start: 201404
  7. BRINTELLIX [Suspect]
     Active Substance: VORTIOXETINE HYDROBROMIDE
     Indication: DEPRESSION
     Dosage: DOSAGE UNIT FREQUENCY:5MG DOSAGE PER DOSE:5 MG
     Route: 048
     Dates: start: 20160310, end: 20160402

REACTIONS (9)
  - Seizure [Fatal]
  - Polydipsia [Fatal]
  - Embolic stroke [Fatal]
  - Cerebrovascular accident [Fatal]
  - Depressed level of consciousness [Fatal]
  - Hyponatraemia [Fatal]
  - Cardiac arrest [Fatal]
  - Respiration abnormal [Fatal]
  - Aspiration [Fatal]

NARRATIVE: CASE EVENT DATE: 201604
